FAERS Safety Report 11383637 (Version 1)
Quarter: 2015Q3

REPORT INFORMATION
  Report Type: Spontaneous
  Country: US (occurrence: US)
  Receive Date: 20150814
  Receipt Date: 20150814
  Transmission Date: 20151125
  Serious: No
  Sender: FDA-Public Use
  Company Number: ALCN2015US004975

PATIENT
  Sex: Male

DRUGS (1)
  1. CIPRODEX [Suspect]
     Active Substance: CIPROFLOXACIN HYDROCHLORIDE\DEXAMETHASONE
     Indication: PRODUCT USED FOR UNKNOWN INDICATION
     Route: 001

REACTIONS (5)
  - Asthma [Unknown]
  - Ear swelling [Recovered/Resolved]
  - Dysphagia [Unknown]
  - Swelling face [Recovered/Resolved]
  - Ear pain [Unknown]
